FAERS Safety Report 9639945 (Version 1)
Quarter: 2013Q4

REPORT INFORMATION
  Report Type: Spontaneous
  Country: US (occurrence: None)
  Receive Date: 20131021
  Receipt Date: 20131021
  Transmission Date: 20140711
  Serious: No
  Sender: FDA-Public Use
  Company Number: None

PATIENT
  Sex: 0

DRUGS (3)
  1. CHANTIX [Suspect]
     Indication: SMOKING CESSATION THERAPY
     Dosage: STARTUBG OACJ 0.5MG-1MG?1MG?2X A DAY?BY MOUTH
     Route: 048
     Dates: start: 20130729, end: 20130805
  2. ABILIFY [Concomitant]
  3. VTVABSE [Concomitant]

REACTIONS (6)
  - Agitation [None]
  - Irritability [None]
  - Insomnia [None]
  - Impaired work ability [None]
  - Aggression [None]
  - Treatment noncompliance [None]
